FAERS Safety Report 7760664-1 (Version None)
Quarter: 2011Q3

REPORT INFORMATION
  Report Type: 
  Country: None (occurrence: None)
  Receive Date: 20110919
  Receipt Date: 20110914
  Transmission Date: 20111222
  Serious: Yes (Death, Hospitalization)
  Sender: FDA-Public Use
  Company Number: US-AMGEN-USASP2011046234

PATIENT
  Sex: Female
  Weight: 92.063 kg

DRUGS (14)
  1. CORTICOSTEROIDS [Concomitant]
     Indication: IDIOPATHIC THROMBOCYTOPENIC PURPURA
     Dosage: UNK
     Dates: start: 20100303
  2. PREGABALIN [Concomitant]
  3. BUMETANIDE [Concomitant]
  4. TOLTERODINE TARTRATE [Concomitant]
  5. IPRATROPIUM BROMIDE [Concomitant]
  6. PROMETHAZINE [Concomitant]
  7. VALACYCLOVIR HYDROCHLORIDE [Concomitant]
  8. POTASSIUM [Concomitant]
  9. VITAMINS                           /90003601/ [Concomitant]
  10. ALBUTEROL [Concomitant]
  11. FLUTICASONE PROPIONATE/SALMETEROL [Concomitant]
  12. NPLATE [Suspect]
     Indication: IDIOPATHIC THROMBOCYTOPENIC PURPURA
     Dosage: 2 MUG/KG, UNK
     Route: 058
     Dates: start: 20100405, end: 20101025
  13. ACETAMINOPHEN W/ CODEINE PHOSPHATE [Concomitant]
     Dosage: UNK UNK, PRN
  14. IBUPROFEN [Concomitant]

REACTIONS (1)
  - SMALL CELL LUNG CANCER STAGE UNSPECIFIED [None]
